FAERS Safety Report 7155822-3 (Version None)
Quarter: 2010Q4

REPORT INFORMATION
  Report Type: 
  Country: None (occurrence: None)
  Receive Date: 20101214
  Receipt Date: 20101203
  Transmission Date: 20110411
  Serious: Yes (Hospitalization)
  Sender: FDA-Public Use
  Company Number: US-JNJFOC-20101202651

PATIENT
  Sex: Male

DRUGS (3)
  1. BLINDED; INFLIXIMAB, RECOMBINANT [Suspect]
     Indication: KAWASAKI'S DISEASE
     Route: 042
  2. PLACEBO [Suspect]
     Indication: KAWASAKI'S DISEASE
     Route: 042
  3. IMMUNOGLOBULINS [Concomitant]
     Indication: KAWASAKI'S DISEASE

REACTIONS (4)
  - DISEASE RECURRENCE [None]
  - KAWASAKI'S DISEASE [None]
  - OEDEMA PERIPHERAL [None]
  - RELAPSING FEVER [None]
